FAERS Safety Report 17623543 (Version 1)
Quarter: 2020Q2

REPORT INFORMATION
  Report Type: Spontaneous
  Country: GR (occurrence: GR)
  Receive Date: 20200403
  Receipt Date: 20200403
  Transmission Date: 20200713
  Serious: Yes (Death, Other)
  Sender: FDA-Public Use
  Company Number: GR-ASTRAZENECA-2020SE46685

PATIENT
  Age: 84 Year
  Sex: Female

DRUGS (2)
  1. AFATINIB [Concomitant]
     Active Substance: AFATINIB
     Indication: LUNG ADENOCARCINOMA
  2. OSIMERTINIB. [Suspect]
     Active Substance: OSIMERTINIB
     Indication: LUNG ADENOCARCINOMA
     Route: 048

REACTIONS (1)
  - Malignant neoplasm progression [Fatal]
